FAERS Safety Report 18717047 (Version 1)
Quarter: 2021Q1

REPORT INFORMATION
  Report Type: Spontaneous
  Country: AU (occurrence: AU)
  Receive Date: 20210108
  Receipt Date: 20210108
  Transmission Date: 20210419
  Serious: Yes (Hospitalization)
  Sender: FDA-Public Use
  Company Number: AU-ARBOR PHARMACEUTICALS, LLC-AU-2020ARB001259

PATIENT
  Sex: Male

DRUGS (3)
  1. TRIPTODUR [Suspect]
     Active Substance: TRIPTORELIN
  2. TRIPTODUR [Suspect]
     Active Substance: TRIPTORELIN
  3. TRIPTODUR [Suspect]
     Active Substance: TRIPTORELIN
     Indication: PROSTATE CANCER METASTATIC
     Dosage: 22.5 MG, 6 M
     Route: 065

REACTIONS (2)
  - Inappropriate schedule of product administration [Unknown]
  - Palpitations [Unknown]

NARRATIVE: CASE EVENT DATE: 202012
